FAERS Safety Report 17637388 (Version 1)
Quarter: 2020Q2

REPORT INFORMATION
  Report Type: Spontaneous
  Country: US (occurrence: US)
  Receive Date: 20200406
  Receipt Date: 20200406
  Transmission Date: 20200713
  Serious: Yes (Hospitalization)
  Sender: FDA-Public Use
  Company Number: None

PATIENT
  Sex: Male

DRUGS (6)
  1. LISINOPRIL. [Concomitant]
     Active Substance: LISINOPRIL
  2. SILDENAFIL 20MG TAB [Suspect]
     Active Substance: SILDENAFIL
     Indication: HEPATITIS C
     Route: 048
     Dates: start: 20180217
  3. VITAMIN D [Concomitant]
     Active Substance: VITAMIN D NOS
  4. HYDRALAZINE [Concomitant]
     Active Substance: HYDRALAZINE HYDROCHLORIDE
  5. AMIODARONE [Concomitant]
     Active Substance: AMIODARONE
  6. POT CHLORIDE [Concomitant]
     Active Substance: POTASSIUM CHLORIDE

REACTIONS (1)
  - Ventricular assist device insertion [None]
